FAERS Safety Report 9649096 (Version 1)
Quarter: 2013Q4

REPORT INFORMATION
  Report Type: Spontaneous
  Country: US (occurrence: None)
  Receive Date: 20131018
  Receipt Date: 20131018
  Transmission Date: 20140711
  Serious: No
  Sender: FDA-Public Use
  Company Number: AEGR000127

PATIENT
  Age: 56 Year
  Sex: Female
  Weight: 81.6 kg

DRUGS (11)
  1. JUXTAPID (LOMITAPIDE) CAPSULE, 10MG [Suspect]
     Route: 048
     Dates: start: 20130812
  2. RANEXA (RANOLAZINE) [Concomitant]
  3. LOSARTAN (LOSARTAN POSTASSIUM) [Concomitant]
  4. METOPROLOL (METOPROLOL TARTRATE) [Concomitant]
  5. CLONAZEPAM [Concomitant]
  6. SYNTHROID (LEVOTHYROXINE SODIUM) [Concomitant]
  7. BIOFLEX (METHOCARBAMOL, PARACETAMOL) [Concomitant]
  8. VITAMIN D (ERGOCALCIFEROL) [Concomitant]
  9. PENTOXIFYLLINE [Concomitant]
  10. VITAMIN E (TOCOPHERYL ACETATE) [Concomitant]
  11. EFFIENT (PRASUGREL HYDROCHLORIDE) [Concomitant]

REACTIONS (1)
  - Flatulence [None]
